FAERS Safety Report 6993687-0 (Version None)
Quarter: 2010Q3

REPORT INFORMATION
  Report Type: 
  Country: None (occurrence: None)
  Receive Date: 20100917
  Receipt Date: 20080613
  Transmission Date: 20110219
  Serious: Yes (Other)
  Sender: FDA-Public Use
  Company Number: US-ASTRAZENECA-2006UW08392

PATIENT
  Sex: Male
  Weight: 74.8 kg

DRUGS (11)
  1. SEROQUEL [Suspect]
     Indication: BIPOLAR DISORDER
     Route: 048
     Dates: start: 20050923
  2. SEROQUEL [Suspect]
     Route: 048
     Dates: start: 20051101, end: 20060701
  3. GEODON [Concomitant]
     Dates: start: 20050101
  4. GEODON [Concomitant]
     Dates: start: 20051109
  5. RISPERDAL [Concomitant]
     Dates: start: 20020101, end: 20040101
  6. RISPERDAL [Concomitant]
     Dates: start: 20050913
  7. ZYPREXA [Concomitant]
     Dates: start: 20040101, end: 20050101
  8. LITHIUM CARBONATE [Concomitant]
     Dates: start: 19920101, end: 19970101
  9. LORAZEPAM [Concomitant]
     Dosage: 0.5 MG-1.0 MG
     Dates: start: 20050923
  10. ACTOS [Concomitant]
     Dates: start: 20051109
  11. LITHIUM CARBONATE [Concomitant]
     Dates: start: 20061218

REACTIONS (1)
  - PANCREATITIS [None]
